FAERS Safety Report 6028317-8 (Version None)
Quarter: 2009Q1

REPORT INFORMATION
  Report Type: 
  Country: None (occurrence: None)
  Receive Date: 20090106
  Receipt Date: 20081231
  Transmission Date: 20090719
  Serious: Yes (Hospitalization)
  Sender: FDA-Public Use
  Company Number: US-PFIZER INC-2008078817

PATIENT
  Sex: Female
  Weight: 129.71 kg

DRUGS (35)
  1. BLINDED *PLACEBO [Suspect]
     Indication: RHEUMATOID ARTHRITIS
     Dosage: HIGH DOSE, 200 MG
     Route: 048
     Dates: start: 20070829
  2. BLINDED CELECOXIB [Suspect]
     Indication: RHEUMATOID ARTHRITIS
     Dosage: HIGH DOSE, 200 MG
     Route: 048
     Dates: start: 20070829
  3. IBUPROFEN TABLETS [Suspect]
     Indication: RHEUMATOID ARTHRITIS
     Dosage: HIGH DOSE, 200 MG
     Route: 048
     Dates: start: 20070829
  4. NAPROXEN [Suspect]
     Indication: RHEUMATOID ARTHRITIS
     Dosage: HIGH DOSE, 200 MG
     Route: 048
     Dates: start: 20070829
  5. BLINDED *PLACEBO [Suspect]
     Dosage: HIGH DOSE, 800 MG
     Dates: start: 20070829, end: 20081231
  6. BLINDED CELECOXIB [Suspect]
     Dosage: HIGH DOSE, 800 MG
     Dates: start: 20070829, end: 20081231
  7. IBUPROFEN TABLETS [Suspect]
     Dosage: HIGH DOSE, 800 MG
     Dates: start: 20070829, end: 20081231
  8. NAPROXEN [Suspect]
     Dosage: HIGH DOSE, 800 MG
     Dates: start: 20070829, end: 20081231
  9. DETROL LA [Suspect]
     Route: 048
     Dates: end: 20080909
  10. NEXIUM [Concomitant]
     Indication: GASTROOESOPHAGEAL REFLUX DISEASE
     Dosage: 40 MG, 1X/DAY
     Route: 048
  11. ISOSORBIDE [Concomitant]
     Dosage: 60 MG, 1X/DAY
     Route: 048
  12. LISINOPRIL [Concomitant]
     Indication: HYPERTENSION
     Dosage: FREQUENCY:BID;INTERVAL:QD
     Route: 048
     Dates: end: 20080909
  13. LISINOPRIL [Concomitant]
     Indication: BLOOD PRESSURE
  14. HYDRALAZINE HCL [Concomitant]
     Indication: HYPERTENSION
     Dosage: 25 MG, 2X/DAY
     Route: 048
  15. DICLOFENAC SODIUM [Concomitant]
     Indication: RHEUMATOID ARTHRITIS
     Dosage: 75 MG, 2X/DAY
     Route: 048
     Dates: end: 20080909
  16. BUPROPION [Concomitant]
     Indication: DEPRESSION
     Dosage: 150 MG, 2X/DAY
     Route: 048
     Dates: end: 20080909
  17. POTASSIUM CHLORIDE [Concomitant]
     Indication: MINERAL SUPPLEMENTATION
     Dosage: 10 MEQ, 2X/DAY
     Route: 048
     Dates: end: 20080909
  18. LASIX [Concomitant]
     Indication: DIURETIC THERAPY
     Dosage: 80 MG, 1X/DAY
     Route: 048
  19. METFORMIN HCL [Concomitant]
     Indication: DIABETES MELLITUS
     Dosage: 1000 MG, 2X/DAY
     Route: 048
  20. AMLODIPINE [Concomitant]
     Indication: HYPERTENSION
     Dosage: 5 MG, 1X/DAY
     Route: 048
  21. GLIPIZIDE [Concomitant]
     Indication: DIABETES MELLITUS
     Dosage: 20 MG, 1X/DAY
     Route: 048
  22. CITALOPRAM HYDROBROMIDE [Concomitant]
     Indication: DEPRESSION
     Dosage: 60 MG, 1X/DAY
     Route: 048
  23. TOPROL-XL [Concomitant]
     Indication: HYPERTENSION
     Dosage: 200 MG, 1X/DAY
     Route: 048
  24. SIMVASTATIN [Concomitant]
     Indication: HYPERCHOLESTEROLAEMIA
     Dosage: 40 MG, 1X/DAY
     Route: 048
     Dates: end: 20080909
  25. LORAZEPAM [Concomitant]
     Indication: ANXIETY
     Dosage: PRN
     Route: 048
  26. ARTIFICIAL TEARS [Concomitant]
     Indication: DRY EYE
     Dosage: PRN
     Route: 047
  27. ALBUTEROL [Concomitant]
     Indication: DYSPNOEA
     Dosage: PRN
     Route: 055
  28. OXYMETAZOLINE HCL [Concomitant]
     Indication: NASAL CONGESTION
     Dosage: PRN
     Route: 045
  29. TUMS [Concomitant]
     Indication: DYSPEPSIA
     Dosage: PRN
     Route: 048
  30. FLONASE [Concomitant]
     Indication: HYPERSENSITIVITY
     Dosage: PRN
     Route: 045
  31. DARVOCET-N 100 [Concomitant]
     Indication: PAIN
     Dosage: PRN
     Route: 048
  32. TYLENOL (CAPLET) [Concomitant]
     Indication: PAIN
     Dosage: PRN
     Route: 048
  33. TYLENOL (CAPLET) [Concomitant]
     Indication: PAIN
     Dosage: UNK
     Route: 048
  34. TYLENOL (CAPLET) [Concomitant]
     Indication: SLEEP DISORDER
  35. AMBIEN [Concomitant]
     Indication: INSOMNIA
     Dosage: PRN
     Route: 048

REACTIONS (1)
  - ENCEPHALOPATHY [None]
